FAERS Safety Report 5680436-1 (Version None)
Quarter: 2008Q1

REPORT INFORMATION
  Report Type: 
  Country: None (occurrence: None)
  Receive Date: 20080326
  Receipt Date: 20080318
  Transmission Date: 20080703
  Serious: Yes (Death)
  Sender: FDA-Public Use
  Company Number: A0701298A

PATIENT
  Age: 57 Year
  Sex: Female

DRUGS (8)
  1. LAMICTAL [Suspect]
     Indication: DRUG USE FOR UNKNOWN INDICATION
     Dosage: 200MG UNKNOWN
     Route: 048
  2. WELLBUTRIN XL [Suspect]
     Indication: DRUG USE FOR UNKNOWN INDICATION
     Dosage: 300MG UNKNOWN
     Route: 048
  3. ABILIFY [Concomitant]
     Dosage: 30MG PER DAY
     Route: 048
  4. SEROQUEL [Concomitant]
     Dosage: 400MG AT NIGHT
     Route: 048
  5. KLONOPIN [Concomitant]
     Dosage: 1MG THREE TIMES PER DAY
     Route: 048
  6. KLONOPIN [Concomitant]
     Dosage: 1MG AT NIGHT
     Route: 048
  7. PROZAC [Concomitant]
     Dosage: 80MG PER DAY
     Route: 048
  8. SEROQUEL [Concomitant]
     Dosage: 50MG TWICE PER DAY
     Route: 048

REACTIONS (1)
  - PNEUMONIA ASPIRATION [None]
